FAERS Safety Report 8089041-3 (Version None)
Quarter: 2012Q1

REPORT INFORMATION
  Report Type: 
  Country: None (occurrence: None)
  Receive Date: 20120128
  Receipt Date: 20110620
  Transmission Date: 20120608
  Serious: No
  Sender: FDA-Public Use
  Company Number: US-ABBOTT-11P-163-0697618-00

PATIENT
  Sex: Female
  Weight: 79.45 kg

DRUGS (13)
  1. HUMIRA [Suspect]
     Indication: ARTHRITIS ENTEROPATHIC
     Dosage: 4 INJECTIONS ONE DAY
  2. HUMIRA [Suspect]
     Dosage: 4 INJECTIONS THE NEXT WEEK
  3. VITAMIN D [Concomitant]
     Indication: PRODUCT USED FOR UNKNOWN INDICATION
     Dosage: 50,000 ONCE WEEKLY
  4. VITAMIN B-12 [Concomitant]
     Indication: PRODUCT USED FOR UNKNOWN INDICATION
     Dosage: ONCE WEEKLY
  5. UNKNOWN OINTMENT [Concomitant]
     Indication: LICHEN SCLEROSUS
     Dosage: AS NEEDED ON HER LABIA
  6. ENDOCORT [Concomitant]
     Indication: PRODUCT USED FOR UNKNOWN INDICATION
     Dosage: 9 MG ONCE DAILY
  7. EFFEXOR [Concomitant]
     Indication: PRODUCT USED FOR UNKNOWN INDICATION
     Dosage: 75 MG ONCE AT BEDTIME
  8. HUMIRA [Suspect]
     Indication: CROHN'S DISEASE
     Dosage: DISCONTINUED DUE TO BCBS DENYING MEDICATION
     Route: 058
     Dates: start: 20080101, end: 20101101
  9. HUMIRA [Suspect]
     Dosage: 2 INJECTIONS FOR 3 WEEKS
  10. ZANTAC [Concomitant]
     Indication: PRODUCT USED FOR UNKNOWN INDICATION
  11. LIDOCAINE [Concomitant]
     Indication: THERAPEUTIC SKIN CARE TOPICAL
     Dosage: FOR PORT AS NEEDED
  12. SYNTHROID [Concomitant]
     Indication: PRODUCT USED FOR UNKNOWN INDICATION
     Dosage: 0.122 MG ONCE DAILY
  13. HUMIRA [Suspect]

REACTIONS (10)
  - IRON DEFICIENCY [None]
  - HAEMORRHAGE [None]
  - INCREASED APPETITE [None]
  - SERUM FERRITIN DECREASED [None]
  - CROHN'S DISEASE [None]
  - HAEMATOCRIT DECREASED [None]
  - BLOOD IRON DECREASED [None]
  - INJECTION SITE NODULE [None]
  - URTICARIA [None]
  - WEIGHT INCREASED [None]
